FAERS Safety Report 5980947-5 (Version None)
Quarter: 2008Q4

REPORT INFORMATION
  Report Type: 
  Country: None (occurrence: None)
  Receive Date: 20081205
  Receipt Date: 20080812
  Transmission Date: 20090506
  Serious: No
  Sender: FDA-Public Use
  Company Number: A0742112A

PATIENT
  Age: 72 Year
  Sex: Female

DRUGS (1)
  1. COMMIT [Suspect]

REACTIONS (3)
  - LOOSE TOOTH [None]
  - SENSITIVITY OF TEETH [None]
  - TOOTH DEPOSIT [None]
